FAERS Safety Report 5366358-4 (Version None)
Quarter: 2007Q2

REPORT INFORMATION
  Report Type: 
  Country: None (occurrence: None)
  Receive Date: 20070620
  Receipt Date: 20070620
  Transmission Date: 20071010
  Serious: No
  Sender: FDA-Public Use
  Company Number: None

PATIENT
  Age: 63 Year
  Sex: Male
  Weight: 80.7403 kg

DRUGS (1)
  1. KLONOPIN [Suspect]
     Indication: PANIC ATTACK
     Dosage: 1/4 MG ONCE PER/DAY PO
     Route: 048
     Dates: start: 20060320, end: 20070614

REACTIONS (6)
  - ADVERSE DRUG REACTION [None]
  - BLEPHAROSPASM [None]
  - DYSPNOEA [None]
  - INNER EAR DISORDER [None]
  - MUSCLE CONTRACTURE [None]
  - TINNITUS [None]
